FAERS Safety Report 5363395-0 (Version None)
Quarter: 2007Q2

REPORT INFORMATION
  Report Type: 
  Country: None (occurrence: None)
  Receive Date: 20070620
  Receipt Date: 20070618
  Transmission Date: 20071010
  Serious: Yes (Hospitalization)
  Sender: FDA-Public Use
  Company Number: JP-BRISTOL-MYERS SQUIBB COMPANY-13817887

PATIENT
  Age: 73 Year
  Sex: Female

DRUGS (7)
  1. ISONIAZID [Suspect]
     Indication: PULMONARY TUBERCULOSIS
     Dates: start: 20050530
  2. AMIKACIN [Suspect]
     Indication: MYCOBACTERIUM ABSCESSUS INFECTION
     Route: 042
     Dates: start: 20050615
  3. ETHAMBUTOL HYDROCHLORIDE [Suspect]
     Indication: PULMONARY TUBERCULOSIS
     Dates: start: 20050530
  4. PYRAZINAMIDE [Suspect]
     Indication: PULMONARY TUBERCULOSIS
     Dates: start: 20050530
  5. RIFAMPICIN [Suspect]
     Indication: PULMONARY TUBERCULOSIS
     Dates: start: 20050530
  6. MEROPENEM [Suspect]
     Indication: MYCOBACTERIUM ABSCESSUS INFECTION
     Route: 042
     Dates: start: 20050615
  7. CLARITHROMYCIN [Suspect]
     Indication: MYCOBACTERIUM ABSCESSUS INFECTION
     Route: 048
     Dates: start: 20050615

REACTIONS (1)
  - MYCOBACTERIUM ABSCESSUS INFECTION [None]
